FAERS Safety Report 23040847 (Version 1)
Quarter: 2023Q4

REPORT INFORMATION
  Report Type: Spontaneous
  Country: US (occurrence: US)
  Receive Date: 20231006
  Receipt Date: 20231006
  Transmission Date: 20240109
  Serious: No
  Sender: FDA-Public Use
  Company Number: US-JUBILANT CADISTA PHARMACEUTICALS-2022JUB00398

PATIENT
  Sex: Male
  Weight: 90.703 kg

DRUGS (6)
  1. PREDNISONE [Suspect]
     Active Substance: PREDNISONE
     Indication: Dermatitis
     Dosage: USED A COURSE EVERY 3 MONTHS
     Dates: start: 2020, end: 2022
  2. PREDNISONE [Suspect]
     Active Substance: PREDNISONE
     Indication: Dermatitis
     Dosage: 60 MG (6 TABLETS) ON DAY 1, AND REDUCE BY 10 MG (1 TABLET) DAILY
     Dates: start: 20221019
  3. UNSPECIFIED INGREDIENT [Concomitant]
     Active Substance: UNSPECIFIED INGREDIENT
  4. UNSPECIFIED INGREDIENT [Concomitant]
     Active Substance: UNSPECIFIED INGREDIENT
  5. UNSPECIFIED ANTI-INFLAMMATION MEDICATION [Concomitant]
  6. UNSPECIFIED INGREDIENT [Concomitant]
     Active Substance: UNSPECIFIED INGREDIENT

REACTIONS (3)
  - Animal bite [Unknown]
  - Dermatitis [Not Recovered/Not Resolved]
  - Therapeutic product effect incomplete [Not Recovered/Not Resolved]

NARRATIVE: CASE EVENT DATE: 20200101
